FAERS Safety Report 6287715-8 (Version None)
Quarter: 2009Q3

REPORT INFORMATION
  Report Type: 
  Country: None (occurrence: None)
  Receive Date: 20090727
  Receipt Date: 20090727
  Transmission Date: 20100115
  Serious: Yes (Other)
  Sender: FDA-Public Use
  Company Number: None

PATIENT
  Age: 55 Year
  Sex: Female
  Weight: 93.441 kg

DRUGS (1)
  1. ZICAM SWABS [Suspect]
     Indication: NASOPHARYNGITIS

REACTIONS (1)
  - HYPOSMIA [None]
